FAERS Safety Report 6756121-1 (Version None)
Quarter: 2010Q2

REPORT INFORMATION
  Report Type: 
  Country: None (occurrence: None)
  Receive Date: 20100604
  Receipt Date: 20100527
  Transmission Date: 20101027
  Serious: Yes (Hospitalization)
  Sender: FDA-Public Use
  Company Number: US-ASTRAZENECA-2010SE24340

PATIENT
  Age: 66 Year
  Sex: Female
  Weight: 79.8 kg

DRUGS (9)
  1. NEXIUM [Suspect]
     Route: 048
     Dates: start: 20010101
  2. HYZAAR [Concomitant]
  3. VYTORIN [Concomitant]
  4. GLUCOPHAGE [Concomitant]
  5. GLYBURIDE [Concomitant]
  6. CLONIDINE [Concomitant]
  7. NORVASC [Concomitant]
  8. SYNTHROID [Concomitant]
  9. VITAMIN D [Concomitant]
     Dosage: 50, 000 IU

REACTIONS (4)
  - FALL [None]
  - HAEMORRHAGE [None]
  - POLYP [None]
  - THROMBOSIS [None]
